FAERS Safety Report 8248559-0 (Version None)
Quarter: 2012Q1

REPORT INFORMATION
  Report Type: 
  Country: None (occurrence: None)
  Receive Date: 20120330
  Receipt Date: 20120321
  Transmission Date: 20120608
  Serious: Yes (Other)
  Sender: FDA-Public Use
  Company Number: SI-RB-038634-12

PATIENT
  Age: 30 Year
  Sex: Male

DRUGS (2)
  1. SUBOXONE [Suspect]
     Indication: DRUG DEPENDENCE
     Dosage: DOSAGE DETAILS UNKNOWN/DAILY
     Route: 060
     Dates: start: 20090901
  2. SUBUTEX [Suspect]
     Indication: DRUG DEPENDENCE
     Dosage: DOSAGE DETAILS UNKNOWN/DAILY
     Route: 060
     Dates: start: 20060213, end: 20090901

REACTIONS (1)
  - TESTIS CANCER [None]
